FAERS Safety Report 13932539 (Version 2)
Quarter: 2017Q3

REPORT INFORMATION
  Report Type: Spontaneous
  Country: US (occurrence: US)
  Receive Date: 20170904
  Receipt Date: 20170906
  Transmission Date: 20171127
  Serious: Yes (Death, Other)
  Sender: FDA-Public Use
  Company Number: US-IPCA LABORATORIES LIMITED-IPC-2017-US-002882

PATIENT
  Age: 42 Year
  Sex: Male

DRUGS (2)
  1. METOPROLOL. [Suspect]
     Active Substance: METOPROLOL
     Indication: PRODUCT USED FOR UNKNOWN INDICATION
     Dosage: UNK
  2. METHAMPHETAMINE [Suspect]
     Active Substance: METHAMPHETAMINE
     Indication: PRODUCT USED FOR UNKNOWN INDICATION

REACTIONS (8)
  - Hypotension [Unknown]
  - Acute respiratory distress syndrome [Unknown]
  - Coma [Unknown]
  - Depressed level of consciousness [Unknown]
  - Hepatotoxicity [Unknown]
  - Exposure to toxic agent [Fatal]
  - Acute lung injury [Unknown]
  - Metabolic acidosis [Unknown]
